FAERS Safety Report 5992437-4 (Version None)
Quarter: 2008Q4

REPORT INFORMATION
  Report Type: 
  Country: None (occurrence: None)
  Receive Date: 20081211
  Receipt Date: 20081204
  Transmission Date: 20090506
  Serious: Yes (Other)
  Sender: FDA-Public Use
  Company Number: GB-JNJCH-2008056453

PATIENT
  Age: 4 Month

DRUGS (1)
  1. CALPOL INFANT SUSPENSION [Suspect]
     Indication: BODY TEMPERATURE
     Dosage: TEXT:5 ML UNSPECIFIED
     Route: 048

REACTIONS (1)
  - CHILD MALTREATMENT SYNDROME [None]
